FAERS Safety Report 20207685 (Version 9)
Quarter: 2022Q2

REPORT INFORMATION
  Report Type: Report from Study
  Country: US (occurrence: US)
  Receive Date: 20211220
  Receipt Date: 20220615
  Transmission Date: 20220720
  Serious: Yes (Other)
  Sender: FDA-Public Use
  Company Number: US-PFIZER INC-202101753003

PATIENT
  Age: 57 Year
  Sex: Female

DRUGS (3)
  1. IBRANCE [Suspect]
     Active Substance: PALBOCICLIB
     Indication: Breast cancer female
     Dosage: 75 MG, CYCLIC FOR 21 DAYS AND OFF 7 DAYS
     Route: 048
     Dates: start: 20211201
  2. IBRANCE [Suspect]
     Active Substance: PALBOCICLIB
     Dosage: 75 MG, CYCLIC (75 MG TABLET DAILY FOR 21 DAYS AND OFF 7 DAYS)
     Route: 048
     Dates: start: 20211202
  3. LETROZOLE [Concomitant]
     Active Substance: LETROZOLE
     Dosage: UNK, DAILY

REACTIONS (25)
  - Neuropathy peripheral [Not Recovered/Not Resolved]
  - Condition aggravated [Unknown]
  - White blood cell count decreased [Unknown]
  - Haemorrhagic diathesis [Unknown]
  - Off label use [Unknown]
  - Alopecia [Not Recovered/Not Resolved]
  - Nausea [Recovering/Resolving]
  - Fatigue [Not Recovered/Not Resolved]
  - Full blood count decreased [Unknown]
  - Neutrophil count decreased [Unknown]
  - Madarosis [Unknown]
  - Pain in extremity [Unknown]
  - Blood potassium decreased [Unknown]
  - Mood swings [Not Recovered/Not Resolved]
  - Headache [Unknown]
  - Affect lability [Unknown]
  - Nocturia [Unknown]
  - Insomnia [Unknown]
  - Constipation [Not Recovered/Not Resolved]
  - Depression [Unknown]
  - Confusional state [Unknown]
  - Bone pain [Not Recovered/Not Resolved]
  - Depressed mood [Unknown]
  - Discouragement [Unknown]
  - Hormone level abnormal [Unknown]

NARRATIVE: CASE EVENT DATE: 20211201
